FAERS Safety Report 21089009 (Version 2)
Quarter: 2022Q3

REPORT INFORMATION
  Report Type: Report from Study
  Country: US (occurrence: US)
  Receive Date: 20220715
  Receipt Date: 20220818
  Transmission Date: 20221026
  Serious: No
  Sender: FDA-Public Use
  Company Number: US-BIOVITRUM-2022US08735

PATIENT
  Sex: Female

DRUGS (1)
  1. KINERET [Suspect]
     Active Substance: ANAKINRA
     Indication: Rheumatoid arthritis
     Dates: start: 20220621

REACTIONS (8)
  - Nausea [Unknown]
  - Fatigue [Unknown]
  - Tenderness [Unknown]
  - Pain [Unknown]
  - Injection site bruising [Unknown]
  - Injection site urticaria [Unknown]
  - Injection site erythema [Unknown]
  - Product dose omission issue [Unknown]
